FAERS Safety Report 10576679 (Version 4)
Quarter: 2014Q4

REPORT INFORMATION
  Report Type: Spontaneous
  Country: US (occurrence: US)
  Receive Date: 20141111
  Receipt Date: 20141208
  Transmission Date: 20150529
  Serious: Yes (Life-Threatening, Hospitalization)
  Sender: FDA-Public Use
  Company Number: US-JNJFOC-20141103448

PATIENT
  Age: 74 Year
  Sex: Male

DRUGS (6)
  1. NIACIN. [Concomitant]
     Active Substance: NIACIN
     Route: 048
  2. AMIODARONE [Concomitant]
     Active Substance: AMIODARONE
     Route: 048
  3. XARELTO [Suspect]
     Active Substance: RIVAROXABAN
     Indication: CEREBROVASCULAR ACCIDENT PROPHYLAXIS
     Route: 048
     Dates: start: 2014, end: 201410
  4. DILTIAZEM [Concomitant]
     Active Substance: DILTIAZEM
     Route: 048
  5. ZOCOR [Concomitant]
     Active Substance: SIMVASTATIN
     Indication: BLOOD CHOLESTEROL INCREASED
     Route: 048
  6. XARELTO [Suspect]
     Active Substance: RIVAROXABAN
     Indication: ATRIAL FIBRILLATION
     Route: 048
     Dates: start: 2014, end: 201410

REACTIONS (2)
  - Inappropriate schedule of drug administration [Unknown]
  - Splenic rupture [Recovered/Resolved]

NARRATIVE: CASE EVENT DATE: 2014
